FAERS Safety Report 8488908-1 (Version None)
Quarter: 2012Q3

REPORT INFORMATION
  Report Type: 
  Country: None (occurrence: None)
  Receive Date: 20120705
  Receipt Date: 20120625
  Transmission Date: 20120928
  Serious: Yes (Hospitalization)
  Sender: FDA-Public Use
  Company Number: JP-EISAI INC-E7389-02306-CLI-JP

PATIENT
  Sex: Female
  Weight: 45 kg

DRUGS (16)
  1. HALAVEN [Suspect]
     Indication: METASTASES TO LYMPH NODES
     Route: 041
     Dates: start: 20111130, end: 20111130
  2. HALAVEN [Suspect]
     Indication: METASTASES TO LUNG
  3. PREGABALIN [Concomitant]
     Indication: CANCER PAIN
     Route: 048
  4. URSO 250 [Concomitant]
     Route: 048
  5. HALAVEN [Suspect]
     Route: 041
     Dates: start: 20111214, end: 20111221
  6. MAGLAX [Concomitant]
     Indication: CONSTIPATION
     Route: 048
  7. HALAVEN [Suspect]
     Indication: METASTASES TO BONE
  8. HALAVEN [Suspect]
     Indication: METASTASES TO LIVER
  9. HALAVEN [Suspect]
  10. RAMELTEON [Concomitant]
     Indication: PROPHYLAXIS
     Route: 048
  11. GRANISETRON [Concomitant]
     Route: 042
  12. HALAVEN [Suspect]
     Indication: METASTASES TO SKIN
  13. ZOMETA [Concomitant]
     Indication: METASTASES TO BONE
     Route: 042
  14. OXYCONTIN [Concomitant]
     Indication: CANCER PAIN
     Route: 048
  15. DECADRON [Concomitant]
     Indication: PROPHYLAXIS
     Route: 048
  16. DEXAMETHASONE SODIUM PHOSPHATE [Concomitant]
     Indication: PROPHYLAXIS
     Route: 042

REACTIONS (3)
  - PULMONARY ARTERY THROMBOSIS [None]
  - ERYTHROPENIA [None]
  - PNEUMONIA [None]
